FAERS Safety Report 5060054-9 (Version None)
Quarter: 2006Q3

REPORT INFORMATION
  Report Type: 
  Country: None (occurrence: None)
  Receive Date: 20060719
  Receipt Date: 20060707
  Transmission Date: 20061208
  Serious: Yes (Hospitalization, Other)
  Sender: FDA-Public Use
  Company Number: 200612891BCC

PATIENT
  Age: 55 Year
  Sex: Female

DRUGS (3)
  1. ALEVE [Suspect]
     Indication: BACK PAIN
     Dosage: 440 MG TOTAL DAILY ORAL ; ORAL
     Route: 048
  2. ALEVE [Suspect]
     Indication: PAIN
     Dosage: 440 MG TOTAL DAILY ORAL ; ORAL
     Route: 048
  3. ASPIRIN [Concomitant]

REACTIONS (1)
  - SHOCK [None]
